FAERS Safety Report 18494243 (Version 1)
Quarter: 2020Q4

REPORT INFORMATION
  Report Type: Spontaneous
  Country: FR (occurrence: FR)
  Receive Date: 20201112
  Receipt Date: 20201112
  Transmission Date: 20210114
  Serious: Yes (Hospitalization)
  Sender: FDA-Public Use
  Company Number: FR-TEVA-2020-FR-1847147

PATIENT
  Age: 44 Year
  Sex: Male

DRUGS (2)
  1. OMEPRAZOLE. [Suspect]
     Active Substance: OMEPRAZOLE
     Indication: GASTROOESOPHAGEAL REFLUX DISEASE
     Dosage: 10 MG
     Route: 048
     Dates: start: 202009, end: 202009
  2. ANTALNOX 550 MG, COMPRIME PELLICULE SECABLE [Suspect]
     Active Substance: NAPROXEN SODIUM
     Indication: ROTATOR CUFF SYNDROME
     Dosage: 1100 MG ,FOR 3 DAYS
     Route: 048
     Dates: start: 202009, end: 202009

REACTIONS (1)
  - Rash maculo-papular [Recovering/Resolving]

NARRATIVE: CASE EVENT DATE: 20201008
